FAERS Safety Report 8493867-1 (Version None)
Quarter: 2012Q3

REPORT INFORMATION
  Report Type: 
  Country: None (occurrence: None)
  Receive Date: 20120706
  Receipt Date: 20120629
  Transmission Date: 20120928
  Serious: Yes (Hospitalization)
  Sender: FDA-Public Use
  Company Number: US-ROCHE-1074618

PATIENT
  Weight: 106.3 kg

DRUGS (17)
  1. ACETAMINOPHEN [Interacting]
     Dates: start: 20120528, end: 20120530
  2. SULFAMETHOXAZOLE AND TRIMETHOPRIM [Interacting]
     Indication: PRODUCT USED FOR UNKNOWN INDICATION
     Dates: start: 20120523, end: 20120527
  3. DIPHENHYDRAMINE HCL [Suspect]
     Indication: PRODUCT USED FOR UNKNOWN INDICATION
     Dates: start: 20120426
  4. MORPHINE [Concomitant]
     Dates: start: 20120601, end: 20120602
  5. ACETAMINOPHEN [Interacting]
     Dates: start: 20120523, end: 20120526
  6. METRONIDAZOLE [Interacting]
     Indication: PRODUCT USED FOR UNKNOWN INDICATION
     Dates: start: 20120527, end: 20120527
  7. VEMURAFENIB [Interacting]
     Indication: METASTATIC MALIGNANT MELANOMA
     Dosage: LAST DOSE PRIOR TO SAE: 27/MAY/2012
     Route: 048
     Dates: start: 20120416, end: 20120527
  8. ACETAMINOPHEN [Interacting]
     Dates: start: 20120519, end: 20120521
  9. ACETAMINOPHEN [Interacting]
     Dates: start: 20120527, end: 20120527
  10. VEMURAFENIB [Interacting]
     Dates: start: 20120620
  11. ACETAMINOPHEN [Interacting]
     Dates: start: 20120531, end: 20120601
  12. CEFTRIAXONE SODIUM [Interacting]
     Indication: PRODUCT USED FOR UNKNOWN INDICATION
     Dates: start: 20120527, end: 20120527
  13. ACETAMINOPHEN [Interacting]
     Dates: start: 20120522, end: 20120522
  14. DOXYCYCLINE [Interacting]
     Indication: PRODUCT USED FOR UNKNOWN INDICATION
     Dates: start: 20120527, end: 20120527
  15. ACETAMINOPHEN [Interacting]
     Indication: PRODUCT USED FOR UNKNOWN INDICATION
     Route: 065
     Dates: start: 20120516, end: 20120517
  16. ACETAMINOPHEN [Interacting]
     Dates: start: 20120518, end: 20120518
  17. OMEPRAZOLE [Suspect]
     Indication: PRODUCT USED FOR UNKNOWN INDICATION
     Dates: start: 20120426

REACTIONS (4)
  - CHOLESTASIS [None]
  - JAUNDICE [None]
  - LIVER FUNCTION TEST ABNORMAL [None]
  - PYREXIA [None]
